FAERS Safety Report 18525055 (Version 2)
Quarter: 2020Q4

REPORT INFORMATION
  Report Type: Report from Study
  Country: None (occurrence: US)
  Receive Date: 20201119
  Receipt Date: 20201124
  Transmission Date: 20210114
  Serious: Yes (Hospitalization)
  Sender: FDA-Public Use
  Company Number: US-ABBVIE-20K-163-3653701-00

PATIENT
  Sex: Male

DRUGS (1)
  1. HUMIRA [Suspect]
     Active Substance: ADALIMUMAB
     Indication: COLITIS ULCERATIVE
     Route: 058
     Dates: start: 201307

REACTIONS (4)
  - Lower limb fracture [Recovering/Resolving]
  - Immunodeficiency [Unknown]
  - Limb traumatic amputation [Unknown]
  - Accident [Unknown]

NARRATIVE: CASE EVENT DATE: 2020
